FAERS Safety Report 7361063-7 (Version None)
Quarter: 2011Q1

REPORT INFORMATION
  Report Type: 
  Country: None (occurrence: None)
  Receive Date: 20110318
  Receipt Date: 20110311
  Transmission Date: 20110831
  Serious: Yes (Other)
  Sender: FDA-Public Use
  Company Number: CHPA2011US04020

PATIENT
  Sex: Male
  Weight: 134.69 kg

DRUGS (10)
  1. ALBUTEROL [Concomitant]
     Dosage: UNK, QD
  2. ASPIRIN [Concomitant]
     Dosage: UNK, OD
  3. AMITRIPTYLINE HCL [Concomitant]
     Indication: DEPRESSION
     Dosage: UNK, QD
  4. BUMETANIDE [Concomitant]
     Indication: HYPERTENSION
     Dosage: UNK, QD
  5. CONTROL PLP [Suspect]
     Dosage: 7 MG, QD
     Route: 062
     Dates: start: 20110122, end: 20110315
  6. CLONAZEPAM [Concomitant]
     Indication: PANIC DISORDER
     Dosage: UNK, QD
  7. FLUOXETINE HCL [Concomitant]
     Dosage: UNK, QD
  8. CONTROL PLP [Suspect]
     Indication: SMOKING CESSATION THERAPY
     Dosage: 21 MG, QD
     Route: 062
     Dates: start: 20110122
  9. AMITRIPTYLINE HCL [Concomitant]
     Indication: PAIN
  10. FLUNISOLIDE [Concomitant]
     Dosage: UNK, QD

REACTIONS (4)
  - MYOCARDIAL INFARCTION [None]
  - APHONIA [None]
  - OVERDOSE [None]
  - TREATMENT NONCOMPLIANCE [None]
